FAERS Safety Report 9592994 (Version 2)
Quarter: 2013Q4

REPORT INFORMATION
  Report Type: Spontaneous
  Country: US (occurrence: US)
  Receive Date: 20131004
  Receipt Date: 20131025
  Transmission Date: 20140711
  Serious: Yes (Disabling)
  Sender: FDA-Public Use
  Company Number: US-MERCK-1310USA000959

PATIENT
  Age: 40 Year
  Sex: Male

DRUGS (1)
  1. SAPHRIS [Suspect]
     Indication: BIPOLAR DISORDER
     Dosage: 5 MG, BID
     Route: 060
     Dates: start: 20130302, end: 20130611

REACTIONS (4)
  - Oesophageal discomfort [Recovered/Resolved]
  - Oral mucosal exfoliation [Recovered/Resolved]
  - Eating disorder [Recovered/Resolved]
  - Dyspepsia [Recovered/Resolved]
